FAERS Safety Report 6435739-X (Version None)
Quarter: 2009Q4

REPORT INFORMATION
  Report Type: 
  Country: None (occurrence: None)
  Receive Date: 20091111
  Receipt Date: 20091109
  Transmission Date: 20100525
  Serious: Yes (Other)
  Sender: FDA-Public Use
  Company Number: US-BAYER-200937916NA

PATIENT
  Age: 43 Year
  Sex: Male
  Weight: 104 kg

DRUGS (8)
  1. PDE-5 INHIBITOR RETROSPECTIVE CONTROL (STUDY DRUG NOT GIVEN) [Suspect]
     Indication: ERECTILE DYSFUNCTION
  2. PRAVASTATIN [Concomitant]
     Indication: HYPERCHOLESTEROLAEMIA
     Route: 048
     Dates: start: 20090401
  3. LEVOTHYROXINE SODIUM [Concomitant]
     Indication: HYPOTHYROIDISM
     Route: 048
     Dates: start: 20090401
  4. LISINOPRIL [Concomitant]
     Indication: HYPERTENSION
     Route: 048
     Dates: start: 20090401, end: 20091001
  5. LANTUS [Concomitant]
     Indication: DIABETES MELLITUS
     Route: 058
     Dates: start: 20090401
  6. HUMALOG [Concomitant]
     Indication: DIABETES MELLITUS
     Route: 058
     Dates: start: 20090401
  7. BRIMONIDINE [Concomitant]
     Indication: OPTIC ISCHAEMIC NEUROPATHY
     Route: 061
     Dates: start: 20090925
  8. TRENTAL [Concomitant]
     Indication: OPTIC ISCHAEMIC NEUROPATHY
     Route: 048
     Dates: start: 20090925

REACTIONS (1)
  - OPTIC ISCHAEMIC NEUROPATHY [None]
